FAERS Safety Report 6779362-6 (Version None)
Quarter: 2010Q2

REPORT INFORMATION
  Report Type: 
  Country: None (occurrence: None)
  Receive Date: 20100618
  Receipt Date: 20100608
  Transmission Date: 20101027
  Serious: Yes (Other)
  Sender: FDA-Public Use
  Company Number: PHHY2010AU34295

PATIENT
  Sex: Male

DRUGS (2)
  1. AFINITOR [Suspect]
     Indication: RENAL CELL CARCINOMA
     Dosage: UNK
  2. DEXAMETHASONE [Concomitant]

REACTIONS (3)
  - BLOOD URINE PRESENT [None]
  - OEDEMA PERIPHERAL [None]
  - VENA CAVA THROMBOSIS [None]
